FAERS Safety Report 9331147 (Version 3)
Quarter: 2013Q3

REPORT INFORMATION
  Report Type: Spontaneous
  Country: NL (occurrence: NL)
  Receive Date: 20130605
  Receipt Date: 20130724
  Transmission Date: 20140515
  Serious: Yes (Hospitalization, Other)
  Sender: FDA-Public Use
  Company Number: NL-AMGEN-NLDSP2013039488

PATIENT
  Age: 66 Year
  Sex: Male
  Weight: 93 kg

DRUGS (10)
  1. NPLATE [Suspect]
     Indication: IMMUNE THROMBOCYTOPENIC PURPURA
     Dosage: 1 MUG/KG, QWK
     Route: 058
     Dates: start: 20120824
  2. ACTONEL [Concomitant]
     Dosage: 35 MG, UNK
     Route: 048
  3. ISOSORBIDE MONONITRATE [Concomitant]
     Dosage: 60 MG, BID
     Route: 048
  4. METFORMIN [Concomitant]
     Dosage: 500 MG, TID
     Route: 048
  5. RANITIDINE [Concomitant]
     Dosage: 150 MG, BID
     Route: 048
  6. PLAVIX [Concomitant]
     Dosage: 75 MG, QD
     Route: 048
  7. LIPITOR [Concomitant]
     Dosage: 40 MG, QD
     Route: 048
  8. COZAAR [Concomitant]
     Dosage: 50 MG, QD
     Route: 048
  9. GLICLAZIDE [Concomitant]
     Dosage: 80 MG, QD
     Route: 048
  10. METOPROLOL [Concomitant]
     Dosage: 50 MG, BID
     Route: 048

REACTIONS (3)
  - Transient ischaemic attack [Unknown]
  - Angina unstable [Recovered/Resolved]
  - Infarction [Unknown]
